FAERS Safety Report 8949903 (Version 12)
Quarter: 2014Q2

REPORT INFORMATION
  Report Type: Report from Study
  Country: IT (occurrence: IT)
  Receive Date: 20121205
  Receipt Date: 20140619
  Transmission Date: 20141212
  Serious: Yes (Hospitalization)
  Sender: FDA-Public Use
  Company Number: IT-ROCHE-1161042

PATIENT
  Age: 51 Year
  Sex: Male
  Weight: 106 kg

DRUGS (6)
  1. VISMODEGIB [Suspect]
     Indication: BASAL CELL CARCINOMA
     Dosage: LAST DOSE PRIOR TO EVENT BECOMING SERIOUS WAS TAKEN ON 19/NOV/2012.
     Route: 048
     Dates: start: 20120213, end: 20121119
  2. TIMOLOL [Concomitant]
     Indication: GLAUCOMA
     Dosage: DOSE FORM =  4 DROPS PER EYE.
     Route: 065
     Dates: start: 20120207
  3. GLUTATHIONE [Concomitant]
     Indication: BLOOD ALKALINE PHOSPHATASE INCREASED
     Route: 065
     Dates: start: 20120411, end: 20120413
  4. GLUTATHIONE [Concomitant]
     Indication: ASPARTATE AMINOTRANSFERASE INCREASED
  5. GLUTATHIONE [Concomitant]
     Indication: ALANINE AMINOTRANSFERASE INCREASED
  6. PANTOPRAZOLE [Concomitant]
     Indication: DYSPEPSIA
     Route: 065
     Dates: start: 20120618, end: 20120730

REACTIONS (1)
  - Localised infection [Recovered/Resolved]
